FAERS Safety Report 14613810 (Version 1)
Quarter: 2018Q1

REPORT INFORMATION
  Report Type: Spontaneous
  Country: US (occurrence: US)
  Receive Date: 20180308
  Receipt Date: 20180308
  Transmission Date: 20180509
  Serious: Yes (Congenital Anomaly, Other)
  Sender: FDA-Public Use
  Company Number: PHEH2018US008762

PATIENT
  Sex: Male

DRUGS (2)
  1. ZOFRAN [Suspect]
     Active Substance: ONDANSETRON HYDROCHLORIDE
     Indication: FOETAL EXPOSURE DURING PREGNANCY
     Route: 064
  2. ZOFRAN ODT [Suspect]
     Active Substance: ONDANSETRON HYDROCHLORIDE
     Indication: FOETAL EXPOSURE DURING PREGNANCY
     Route: 064

REACTIONS (16)
  - Atrial septal defect [Unknown]
  - Cardiac aneurysm [Unknown]
  - Foetal exposure during pregnancy [Unknown]
  - Discomfort [Unknown]
  - Dyspnoea [Unknown]
  - Pain [Unknown]
  - Emotional distress [Unknown]
  - Heart disease congenital [Unknown]
  - Cardiac failure congestive [Unknown]
  - Injury [Unknown]
  - Ventricular septal defect [Unknown]
  - Hypertension neonatal [Unknown]
  - Pulmonary vein stenosis [Unknown]
  - Anhedonia [Unknown]
  - Deformity [Unknown]
  - Palpitations [Unknown]
